FAERS Safety Report 19671220 (Version 7)
Quarter: 2022Q3

REPORT INFORMATION
  Report Type: Report from Study
  Country: US (occurrence: US)
  Receive Date: 20210806
  Receipt Date: 20220905
  Transmission Date: 20221027
  Serious: No
  Sender: FDA-Public Use
  Company Number: US-NOVARTISTESTPH-NVSC2021US172902

PATIENT
  Age: 20 Year
  Sex: Female
  Weight: 60.771 kg

DRUGS (7)
  1. TREPROSTINIL [Suspect]
     Active Substance: TREPROSTINIL
     Indication: Pulmonary arterial hypertension
     Dosage: 2.3 NANOGRAM PER KILOGRAM, CONT (DOSE 2.3 NG/KG/MIN)
     Route: 058
     Dates: start: 20210629
  2. TREPROSTINIL [Suspect]
     Active Substance: TREPROSTINIL
     Indication: Pulmonary arterial hypertension
     Dosage: 49 NANOGRAM PER KILOGRAM, CONT (DOSE 49 NG/KG/MIN)
     Route: 058
     Dates: start: 20210629
  3. TREPROSTINIL [Suspect]
     Active Substance: TREPROSTINIL
     Dosage: 79.5 NANOGRAM PER KILOGRAM, CONT (DOSE 79.5 NG/KG/MIN)
     Route: 058
     Dates: start: 20210629
  4. TREPROSTINIL [Suspect]
     Active Substance: TREPROSTINIL
     Dosage: UNK,79.5 NG/KG/MIN
     Route: 058
     Dates: start: 20210629
  5. TREPROSTINIL [Suspect]
     Active Substance: TREPROSTINIL
     Dosage: UNK, CONT (100 NG/KG/M I N)
     Route: 058
     Dates: start: 20210629
  6. WARFARIN [Concomitant]
     Active Substance: WARFARIN
     Indication: Product used for unknown indication
     Dosage: UNK
     Route: 065
  7. SILDENAFIL CITRATE [Concomitant]
     Active Substance: SILDENAFIL CITRATE
     Indication: Product used for unknown indication
     Dosage: UNK
     Route: 065

REACTIONS (9)
  - Product dose omission in error [Unknown]
  - Migraine [Unknown]
  - Device infusion issue [Unknown]
  - Vomiting [Unknown]
  - Headache [Unknown]
  - Diarrhoea [Unknown]
  - Infusion site haemorrhage [Unknown]
  - Injection site irritation [Unknown]
  - Injection site erythema [Unknown]

NARRATIVE: CASE EVENT DATE: 20210723
